FAERS Safety Report 15750429 (Version 1)
Quarter: 2018Q4

REPORT INFORMATION
  Report Type: Spontaneous
  Country: US (occurrence: US)
  Receive Date: 20181206
  Receipt Date: 20181206
  Transmission Date: 20190205
  Serious: Yes (Life-Threatening, Hospitalization, Disabling, Other)
  Sender: FDA-Public Use
  Company Number: None

PATIENT
  Age: 15 Year
  Weight: 49.5 kg

DRUGS (8)
  1. VITAMIN C [Concomitant]
     Active Substance: ASCORBIC ACID
  2. MIRALAX [Suspect]
     Active Substance: POLYETHYLENE GLYCOL 3350
     Indication: CONSTIPATION
     Dates: start: 20070101, end: 20170501
  3. ASPORATATE [Concomitant]
  4. MULTI-VITAMIN [Concomitant]
     Active Substance: .ALPHA.-TOCOPHEROL ACETATE, DL-\ASCORBIC ACID\CYANOCOBALAMIN\FLUORIDE ION\FOLIC ACID\NIACIN\PYRIDOXINE\RIBOFLAVIN\THIAMINE\VITAMIN A\VITAMIN D
  5. CYPROHEPTADINE. [Concomitant]
     Active Substance: CYPROHEPTADINE
  6. VITAMIN B6 [Concomitant]
     Active Substance: PYRIDOXINE HYDROCHLORIDE
  7. VIT B-12 [Concomitant]
  8. MAGNESIUM [Concomitant]
     Active Substance: MAGNESIUM

REACTIONS (24)
  - Sensory disturbance [None]
  - Illusion [None]
  - Brain neoplasm [None]
  - Panic attack [None]
  - Neuropsychiatric syndrome [None]
  - Tic [None]
  - Suicide attempt [None]
  - Liver disorder [None]
  - Obsessive-compulsive disorder [None]
  - Phobia [None]
  - Metabolic acidosis [None]
  - Post-traumatic stress disorder [None]
  - Food aversion [None]
  - Dysphagia [None]
  - Growth retardation [None]
  - Autism spectrum disorder [None]
  - Anxiety [None]
  - Gastrointestinal disorder [None]
  - Growth hormone deficiency [None]
  - Vomiting [None]
  - Myoclonic epilepsy [None]
  - Nausea [None]
  - Brain injury [None]
  - Migraine [None]

NARRATIVE: CASE EVENT DATE: 20161101
